FAERS Safety Report 23092297 (Version 1)
Quarter: 2023Q4

REPORT INFORMATION
  Report Type: Spontaneous
  Country: DE (occurrence: DE)
  Receive Date: 20231021
  Receipt Date: 20231021
  Transmission Date: 20240110
  Serious: Yes (Other)
  Sender: FDA-Public Use
  Company Number: DE-002147023-NVSC2023DE224217

PATIENT
  Age: 71 Year
  Sex: Male

DRUGS (1)
  1. MIDOSTAURIN [Suspect]
     Active Substance: MIDOSTAURIN
     Indication: Product used for unknown indication
     Dosage: 100 MG (2) (ON 20 DEC)
     Route: 065

REACTIONS (12)
  - Platelet count decreased [Unknown]
  - Ascites [Unknown]
  - Hepatic fibrosis [Unknown]
  - Myelofibrosis [Unknown]
  - Periorbital oedema [Unknown]
  - Fatigue [Unknown]
  - Hepatomegaly [Unknown]
  - Splenomegaly [Unknown]
  - Abdominal lymphadenopathy [Unknown]
  - Nausea [Unknown]
  - Platelet count increased [Unknown]
  - Abdominal discomfort [Unknown]
